FAERS Safety Report 20889876 (Version 1)
Quarter: 2022Q2

REPORT INFORMATION
  Report Type: Other
  Country: US (occurrence: None)
  Receive Date: 20220530
  Receipt Date: 20220530
  Transmission Date: 20220721
  Serious: Yes (Other)
  Sender: FDA-Public Use
  Company Number: US-ROCHE-2856160

PATIENT
  Sex: Female

DRUGS (20)
  1. XOLAIR [Suspect]
     Active Substance: OMALIZUMAB
     Indication: Asthma
     Route: 058
  2. ALBUTEROL SULFATE [Concomitant]
     Active Substance: ALBUTEROL SULFATE
  3. ATROVENT HFA [Concomitant]
     Active Substance: IPRATROPIUM BROMIDE
  4. BENZONATATE [Concomitant]
     Active Substance: BENZONATATE
  5. BORAX [Concomitant]
  6. CLARITIN [Concomitant]
     Active Substance: LORATADINE
  7. DIPHENHYDRAMINE HYDROCHLORIDE [Concomitant]
     Active Substance: DIPHENHYDRAMINE HYDROCHLORIDE
  8. DULOXETINE [Concomitant]
     Active Substance: DULOXETINE
  9. DYMISTA [Concomitant]
     Active Substance: AZELASTINE HYDROCHLORIDE\FLUTICASONE PROPIONATE
  10. EPINEPHRINE [Concomitant]
     Active Substance: EPINEPHRINE
  11. GABAPENTIN [Concomitant]
     Active Substance: GABAPENTIN
  12. GUAIFENESIN [Concomitant]
     Active Substance: GUAIFENESIN
  13. MELATONIN [Concomitant]
     Active Substance: MELATONIN
  14. MONTELUKAST [Concomitant]
     Active Substance: MONTELUKAST SODIUM
  15. NABUMETONE [Concomitant]
     Active Substance: NABUMETONE
  16. OMEPRAZOLE [Concomitant]
     Active Substance: OMEPRAZOLE
  17. ONDANSETRON [Concomitant]
     Active Substance: ONDANSETRON
  18. PANTOPRAZOLE [Concomitant]
     Active Substance: PANTOPRAZOLE
  19. TOPIRAMATE [Concomitant]
     Active Substance: TOPIRAMATE
  20. VENTOLIN HFA [Concomitant]
     Active Substance: ALBUTEROL SULFATE

REACTIONS (2)
  - Migraine [Unknown]
  - Anaphylactic reaction [Unknown]
